FAERS Safety Report 8410907-6 (Version None)
Quarter: 2012Q2

REPORT INFORMATION
  Report Type: 
  Country: None (occurrence: None)
  Receive Date: 20120323
  Receipt Date: 20111201
  Transmission Date: 20120825
  Serious: Yes (Other)
  Sender: FDA-Public Use
  Company Number: 163-21880-11120294

PATIENT
  Age: 68 Year
  Sex: Female
  Weight: 67 kg

DRUGS (8)
  1. ZOMETA [Concomitant]
  2. REVLIMID [Suspect]
     Indication: MULTIPLE MYELOMA
     Dosage: 15 MG, 1 IN 1 D, PO
     Route: 048
     Dates: start: 20111121
  3. SINGULAIR (MONTELUKAST SODIUM) (UNKNOWN) [Concomitant]
  4. GABAPENTIN [Concomitant]
  5. ALBUTEROL (SALBUTAMOL) (UNKNOWN) [Concomitant]
  6. LISINOPRIL [Concomitant]
  7. FLOVENT (FLUTICASONE PROPIONATE) (UNKNOWN) [Concomitant]
  8. IRON SULFATE (FERROUS SULFATE) (UNKNOWN) [Concomitant]

REACTIONS (1)
  - RASH [None]
